FAERS Safety Report 15350126 (Version 1)
Quarter: 2018Q3

REPORT INFORMATION
  Report Type: Spontaneous
  Country: US (occurrence: US)
  Receive Date: 20180905
  Receipt Date: 20180905
  Transmission Date: 20181010
  Serious: Yes (Hospitalization, Other)
  Sender: FDA-Public Use
  Company Number: US-HETERO CORPORATE-HET2018US00859

PATIENT
  Age: 15 Year
  Sex: Male

DRUGS (1)
  1. LITHIUM. [Suspect]
     Active Substance: LITHIUM
     Indication: PRODUCT USED FOR UNKNOWN INDICATION
     Dosage: UNK
     Route: 065

REACTIONS (4)
  - Hypovolaemic shock [Unknown]
  - Toxicity to various agents [Unknown]
  - Multiple organ dysfunction syndrome [Unknown]
  - Ischaemia [Unknown]
